FAERS Safety Report 10275326 (Version 1)
Quarter: 2014Q2

REPORT INFORMATION
  Report Type: Spontaneous
  Country: US (occurrence: None)
  Receive Date: 20140630
  Receipt Date: 20140630
  Transmission Date: 20141212
  Serious: No
  Sender: FDA-Public Use
  Company Number: None

PATIENT
  Age: 57 Year
  Sex: Male
  Weight: 170 kg

DRUGS (2)
  1. CEFEPIME [Suspect]
     Indication: CELLULITIS
     Route: 042
     Dates: start: 20140623, end: 20140626
  2. FUROSEMIDE [Concomitant]

REACTIONS (2)
  - Rash morbilliform [None]
  - Rash pruritic [None]
